FAERS Safety Report 23509293 (Version 2)
Quarter: 2024Q1

REPORT INFORMATION
  Report Type: Spontaneous
  Country: US (occurrence: US)
  Receive Date: 20240210
  Receipt Date: 20240213
  Transmission Date: 20240410
  Serious: Yes (Death)
  Sender: FDA-Public Use
  Company Number: US-DSJP-DSU-2024-106657

PATIENT
  Sex: Female

DRUGS (1)
  1. ENHERTU [Suspect]
     Active Substance: FAM-TRASTUZUMAB DERUXTECAN-NXKI
     Indication: Small cell lung cancer
     Dosage: UNK
     Route: 065

REACTIONS (3)
  - Pneumonitis [Fatal]
  - Drug effective for unapproved indication [Unknown]
  - Off label use [Unknown]
